FAERS Safety Report 10692986 (Version 2)
Quarter: 2015Q1

REPORT INFORMATION
  Report Type: Spontaneous
  Country: US (occurrence: US)
  Receive Date: 20150106
  Receipt Date: 20150106
  Transmission Date: 20150720
  Serious: Yes (Disabling)
  Sender: FDA-Public Use
  Company Number: US-009507513-1204USA03737

PATIENT
  Sex: Male
  Weight: 79.82 kg

DRUGS (2)
  1. ALLEGRA-D [Concomitant]
     Active Substance: FEXOFENADINE\PSEUDOEPHEDRINE
     Indication: SEASONAL ALLERGY
     Dosage: UNK
     Dates: start: 199912
  2. PROPECIA [Suspect]
     Active Substance: FINASTERIDE
     Indication: ALOPECIA
     Dosage: 1 MG, QD
     Route: 048
     Dates: start: 20041002, end: 200710

REACTIONS (35)
  - Anxiety [Not Recovered/Not Resolved]
  - Erectile dysfunction [Not Recovered/Not Resolved]
  - Vitiligo [Unknown]
  - Dyspepsia [Unknown]
  - Gastroenteritis bacterial [Unknown]
  - Epididymitis [Recovered/Resolved]
  - Benign prostatic hyperplasia [Unknown]
  - Cognitive disorder [Not Recovered/Not Resolved]
  - Depression [Not Recovered/Not Resolved]
  - Dermal cyst [Unknown]
  - Malaise [Unknown]
  - Libido decreased [Not Recovered/Not Resolved]
  - Streptococcal infection [Unknown]
  - Skin cyst excision [Unknown]
  - Androgen deficiency [Unknown]
  - Herpes simplex [Unknown]
  - Cardiac murmur [Unknown]
  - Anorgasmia [Unknown]
  - Hypogonadism [Unknown]
  - Protein urine present [Unknown]
  - Ejaculation failure [Not Recovered/Not Resolved]
  - Herpes zoster [Unknown]
  - Apathy [Unknown]
  - Drug ineffective [Unknown]
  - Drug ineffective [Unknown]
  - Sexual dysfunction [Not Recovered/Not Resolved]
  - Bradyphrenia [Unknown]
  - Fatigue [Unknown]
  - Semen analysis abnormal [Unknown]
  - Infertility [Unknown]
  - Drug ineffective [Unknown]
  - Feeling abnormal [Unknown]
  - Haematospermia [Unknown]
  - Stress [Unknown]
  - Drug ineffective [Unknown]

NARRATIVE: CASE EVENT DATE: 200410
